FAERS Safety Report 14161516 (Version 4)
Quarter: 2017Q4

REPORT INFORMATION
  Report Type: Spontaneous
  Country: US (occurrence: US)
  Receive Date: 20171106
  Receipt Date: 20171218
  Transmission Date: 20180321
  Serious: Yes (Other)
  Sender: FDA-Public Use
  Company Number: US-PFIZER INC-2017477549

PATIENT
  Age: 95 Year
  Sex: Female
  Weight: 58.96 kg

DRUGS (5)
  1. LYRICA [Suspect]
     Active Substance: PREGABALIN
     Indication: FIBROMYALGIA
  2. OMEPRAZOLE. [Concomitant]
     Active Substance: OMEPRAZOLE
     Indication: GASTROOESOPHAGEAL REFLUX DISEASE
     Dosage: 20 MG, UNK
  3. LYRICA [Suspect]
     Active Substance: PREGABALIN
     Indication: PAIN
     Dosage: 1 DF, 1X/DAY (ONE PILL EVERY NIGHT)
     Dates: start: 2017
  4. ATENOLOL. [Concomitant]
     Active Substance: ATENOLOL
     Indication: HYPERTENSION
     Dosage: UNK
  5. LYRICA [Suspect]
     Active Substance: PREGABALIN
     Indication: HYPOAESTHESIA
     Dosage: 50 MG, 1X/DAY (AT BEDSIDE)
     Route: 048
     Dates: start: 201706

REACTIONS (10)
  - Dizziness [Not Recovered/Not Resolved]
  - Peripheral swelling [Recovering/Resolving]
  - Nausea [Not Recovered/Not Resolved]
  - Insomnia [Unknown]
  - Somnolence [Unknown]
  - Drug ineffective [Unknown]
  - Hypoaesthesia [Unknown]
  - Blindness [Unknown]
  - Weight increased [Unknown]
  - Abdominal pain upper [Not Recovered/Not Resolved]

NARRATIVE: CASE EVENT DATE: 2017
